FAERS Safety Report 9653358 (Version 1)
Quarter: 2013Q4

REPORT INFORMATION
  Report Type: Spontaneous
  Country: US (occurrence: US)
  Receive Date: 20131029
  Receipt Date: 20131029
  Transmission Date: 20140711
  Serious: No
  Sender: FDA-Public Use
  Company Number: US-PFIZER INC-2013306765

PATIENT
  Age: 61 Year
  Sex: Female
  Weight: 72.56 kg

DRUGS (5)
  1. LYRICA [Suspect]
     Indication: PAIN
     Dosage: 150 MG, 1X/DAY
     Route: 048
     Dates: start: 201307, end: 201307
  2. LYRICA [Suspect]
     Dosage: 150 MG, 2X/DAY
     Route: 048
     Dates: start: 201307
  3. PLAVIX [Concomitant]
     Indication: FIBROMUSCULAR DYSPLASIA
     Dosage: UNK
  4. NEXIUM [Concomitant]
     Dosage: UNK
  5. FOLBEE [Concomitant]
     Indication: VITAMIN SUPPLEMENTATION
     Dosage: UNK

REACTIONS (7)
  - Off label use [Unknown]
  - Intentional drug misuse [Unknown]
  - Feeling drunk [Recovered/Resolved]
  - Activities of daily living impaired [Recovered/Resolved]
  - Weight increased [Unknown]
  - Arthralgia [Unknown]
  - Pain [Unknown]
